FAERS Safety Report 8625443-1 (Version None)
Quarter: 2012Q3

REPORT INFORMATION
  Report Type: 
  Country: None (occurrence: None)
  Receive Date: 20120827
  Receipt Date: 20120820
  Transmission Date: 20120928
  Serious: Yes (Other)
  Sender: FDA-Public Use
  Company Number: PHHY2012US072606

PATIENT
  Age: 28 Year
  Sex: Male

DRUGS (2)
  1. ACETAMINOPHEN [Suspect]
  2. ACETAMINOPHEN AND HYDROCODONE BITARTRATE [Suspect]

REACTIONS (7)
  - FUNGAL RHINITIS [None]
  - NASAL SEPTUM PERFORATION [None]
  - WRONG TECHNIQUE IN DRUG USAGE PROCESS [None]
  - RHINALGIA [None]
  - NASAL CONGESTION [None]
  - DRUG ABUSE [None]
  - NASOPHARYNGITIS [None]
